FAERS Safety Report 4473855-2 (Version None)
Quarter: 2004Q4

REPORT INFORMATION
  Report Type: 
  Country: None (occurrence: None)
  Receive Date: 20041008
  Receipt Date: 20041008
  Transmission Date: 20050328
  Serious: Yes (Other)
  Sender: FDA-Public Use
  Company Number: None

PATIENT
  Age: 66 Year
  Sex: Male
  Weight: 103 kg

DRUGS (6)
  1. DOCETAXEL [Suspect]
     Indication: PROSTATE CANCER
     Dosage: 36 MG/M2, D 1,8, 15 IV
     Route: 042
     Dates: start: 20040708
  2. CAPECITABINE [Suspect]
     Indication: PROSTATE CANCER
     Dosage: 1250 MG/M2, D5-18, PO
     Route: 048
     Dates: start: 20040712
  3. LIPITOR [Concomitant]
  4. ASPIRIN [Concomitant]
  5. VIAGRA [Concomitant]
  6. ROBITUSSIN SYRUP WITH CODIENE [Concomitant]

REACTIONS (1)
  - MUCOSAL INFLAMMATION [None]
